FAERS Safety Report 9166199 (Version 1)
Quarter: 2013Q1

REPORT INFORMATION
  Report Type: Spontaneous
  Country: IT (occurrence: None)
  Receive Date: 20130301
  Receipt Date: 20130301
  Transmission Date: 20140127
  Serious: Yes (Hospitalization)
  Sender: FDA-Public Use
  Company Number: GER/ITL/13/0028253

PATIENT
  Age: 64 Year
  Sex: Female

DRUGS (2)
  1. CLOPIDOGREL (CLOPIDOGREL) [Suspect]
     Indication: CORONARY ANGIOPLASTY
     Route: 048
     Dates: start: 20120503, end: 20121206
  2. ACETYLSALICYLIC ACID(ACETYLSALICYLIC ACID) [Concomitant]

REACTIONS (2)
  - Arterial restenosis [None]
  - Thrombosis in device [None]
